FAERS Safety Report 7978092-2 (Version None)
Quarter: 2011Q4

REPORT INFORMATION
  Report Type: 
  Country: None (occurrence: None)
  Receive Date: 20111201
  Receipt Date: 20111129
  Transmission Date: 20120403
  Serious: Yes (Life-Threatening, Hospitalization)
  Sender: FDA-Public Use
  Company Number: 2010SP028594

PATIENT
  Age: 60 Year
  Sex: Female

DRUGS (4)
  1. PEGASYS [Concomitant]
  2. PEG-INTRON [Suspect]
     Indication: HEPATITIS C
     Dosage: ;SC
     Route: 058
     Dates: start: 20090801
  3. PEG-INTRON [Suspect]
     Indication: HEPATITIS C
     Dosage: ;SC
     Route: 058
     Dates: end: 20100501
  4. REBETOL [Suspect]
     Indication: HEPATITIS C
     Dosage: ;PO

REACTIONS (1)
  - CARDIAC FAILURE ACUTE [None]
